FAERS Safety Report 21989563 (Version 1)
Quarter: 2023Q1

REPORT INFORMATION
  Report Type: Spontaneous
  Country: US (occurrence: US)
  Receive Date: 20230214
  Receipt Date: 20230214
  Transmission Date: 20230418
  Serious: Yes (Life-Threatening, Hospitalization, Other)
  Sender: FDA-Public Use
  Company Number: US-UNITED THERAPEUTICS-UNT-2023-004235

PATIENT
  Age: 58 Year
  Sex: Female
  Weight: 53.515 kg

DRUGS (3)
  1. TYVASO [Suspect]
     Active Substance: TREPROSTINIL
     Indication: Pulmonary arterial hypertension
     Dosage: 72 ?G, QID
  2. TYVASO [Suspect]
     Active Substance: TREPROSTINIL
     Dosage: UNK
     Dates: start: 20170328
  3. OPSUMIT [Concomitant]
     Active Substance: MACITENTAN
     Indication: Product used for unknown indication
     Dosage: UNK
     Route: 065

REACTIONS (10)
  - Cardiac arrest [Unknown]
  - Device related sepsis [Unknown]
  - Narcolepsy [Unknown]
  - Ventricular extrasystoles [Unknown]
  - Chest discomfort [Unknown]
  - Disease progression [Unknown]
  - Dizziness [Unknown]
  - Tinnitus [Unknown]
  - Hypotension [Unknown]
  - Eructation [Unknown]

NARRATIVE: CASE EVENT DATE: 20230101
